FAERS Safety Report 8616074-8 (Version None)
Quarter: 2012Q3

REPORT INFORMATION
  Report Type: 
  Country: None (occurrence: None)
  Receive Date: 20120823
  Receipt Date: 20120816
  Transmission Date: 20120928
  Serious: Yes (Hospitalization)
  Sender: FDA-Public Use
  Company Number: US-ROCHE-1097053

PATIENT
  Age: 37 Year
  Sex: Male

DRUGS (5)
  1. PROCARDIA [Concomitant]
  2. NITRO-BID [Concomitant]
  3. CAPOTEN [Concomitant]
  4. ACTIVASE [Suspect]
     Indication: PRODUCT USED FOR UNKNOWN INDICATION
  5. LOPRESSOR [Concomitant]

REACTIONS (7)
  - BLOOD PRESSURE DECREASED [None]
  - ATELECTASIS [None]
  - EXTRASYSTOLES [None]
  - CHEST PAIN [None]
  - VENTRICULAR TACHYCARDIA [None]
  - VENTRICULAR EXTRASYSTOLES [None]
  - POLYCYTHAEMIA [None]
